FAERS Safety Report 9982325 (Version 2)
Quarter: 2014Q1

REPORT INFORMATION
  Report Type: Report from Study
  Country: US (occurrence: US)
  Receive Date: 20140307
  Receipt Date: 20140307
  Transmission Date: 20141002
  Serious: No
  Sender: FDA-Public Use
  Company Number: US-ABBVIE-12P-163-0968851-00

PATIENT
  Age: 61 Year
  Sex: Male
  Weight: 93.07 kg

DRUGS (10)
  1. HUMIRA [Suspect]
     Indication: PSORIATIC ARTHROPATHY
     Dates: start: 201001, end: 201207
  2. PRILOSEC [Concomitant]
     Indication: PRODUCT USED FOR UNKNOWN INDICATION
     Dosage: DAILY
  3. CENTRUM SILVER [Concomitant]
     Indication: VITAMIN SUPPLEMENTATION
     Dosage: DAILY
  4. SAW PALMETTO [Concomitant]
     Indication: VITAMIN SUPPLEMENTATION
  5. HERB [Concomitant]
     Indication: SUPPLEMENTATION THERAPY
  6. FISH OIL [Concomitant]
     Indication: PRODUCT USED FOR UNKNOWN INDICATION
  7. CALTRATE + D [Concomitant]
     Indication: PRODUCT USED FOR UNKNOWN INDICATION
     Dosage: DAILY
  8. GLUCOSAMINE CHONDROITIN [Concomitant]
     Indication: PRODUCT USED FOR UNKNOWN INDICATION
     Dosage: DAILY
  9. ASPIRIN [Concomitant]
     Indication: PRODUCT USED FOR UNKNOWN INDICATION
     Dosage: 81MG DAILY
  10. AREDS EYE VITAMINS [Concomitant]
     Indication: MACULAR DEGENERATION
     Dosage: 1 GEL TAB IN AM AND ONE GEL TAB IN PM

REACTIONS (9)
  - Incorrect dose administered [Recovering/Resolving]
  - Device malfunction [Recovering/Resolving]
  - Injection site haemorrhage [Recovering/Resolving]
  - Injection site reaction [Recovering/Resolving]
  - Macular degeneration [Not Recovered/Not Resolved]
  - Psoriatic arthropathy [Not Recovered/Not Resolved]
  - Local swelling [Not Recovered/Not Resolved]
  - Back pain [Not Recovered/Not Resolved]
  - Muscular weakness [Not Recovered/Not Resolved]
